FAERS Safety Report 10518704 (Version 2)
Quarter: 2014Q4

REPORT INFORMATION
  Report Type: Spontaneous
  Country: GB (occurrence: GB)
  Receive Date: 20141015
  Receipt Date: 20141015
  Transmission Date: 20150528
  Serious: Yes (Disabling)
  Sender: FDA-Public Use
  Company Number: GB-LEO PHARMA-224857

PATIENT
  Age: 28 Year
  Sex: Male

DRUGS (2)
  1. DIPROBASE [Suspect]
     Active Substance: CHLOROCRESOL
     Indication: PRODUCT USED FOR UNKNOWN INDICATION
  2. DAIVOBET [Suspect]
     Active Substance: BETAMETHASONE DIPROPIONATE\CALCIPOTRIENE
     Indication: PSORIASIS
     Route: 061
     Dates: start: 2009, end: 20131111

REACTIONS (3)
  - Psoriasis [Not Recovered/Not Resolved]
  - Rebound psoriasis [Unknown]
  - Tachyphylaxis [Unknown]

NARRATIVE: CASE EVENT DATE: 2013
